FAERS Safety Report 8114187-0 (Version None)
Quarter: 2012Q1

REPORT INFORMATION
  Report Type: 
  Country: None (occurrence: None)
  Receive Date: 20120205
  Receipt Date: 20111014
  Transmission Date: 20120608
  Serious: No
  Sender: FDA-Public Use
  Company Number: US-ALLERGAN-1113614US

PATIENT
  Age: 54 Year
  Sex: Male

DRUGS (1)
  1. PRED MILD [Suspect]
     Indication: EYE IRRITATION
     Dosage: UNK
     Route: 047
     Dates: start: 20110930

REACTIONS (4)
  - OCULAR HYPERAEMIA [None]
  - INFLAMMATION [None]
  - PAIN [None]
  - BURNING SENSATION [None]
